FAERS Safety Report 8262097-0 (Version None)
Quarter: 2012Q2

REPORT INFORMATION
  Report Type: 
  Country: None (occurrence: None)
  Receive Date: 20120402
  Receipt Date: 20120323
  Transmission Date: 20120825
  Serious: Yes (Hospitalization)
  Sender: FDA-Public Use
  Company Number: 2012SP016668

PATIENT
  Age: 29 Year
  Sex: Female

DRUGS (4)
  1. CITALOPRAM HYDROBROMIDE [Suspect]
     Indication: PRODUCT USED FOR UNKNOWN INDICATION
     Dosage: ;ONCE;
     Dates: start: 20110716, end: 20110716
  2. REMERON [Suspect]
     Indication: PRODUCT USED FOR UNKNOWN INDICATION
     Dosage: ;ONCE;
     Dates: start: 20110716, end: 20110716
  3. DIPIPERON (PIPAMPERONE HYDROCHLORIDE) [Suspect]
     Indication: PRODUCT USED FOR UNKNOWN INDICATION
     Dosage: ;ONCE;
     Dates: start: 20110716, end: 20110716
  4. LORAZEPAM [Suspect]
     Indication: PRODUCT USED FOR UNKNOWN INDICATION
     Dosage: ;ONCE;
     Dates: start: 20110716, end: 20110716

REACTIONS (5)
  - HYPOTENSION [None]
  - AGITATION [None]
  - URINARY INCONTINENCE [None]
  - HYPOKALAEMIA [None]
  - SUICIDE ATTEMPT [None]
